FAERS Safety Report 4407617-9 (Version None)
Quarter: 2004Q3

REPORT INFORMATION
  Report Type: 
  Country: None (occurrence: None)
  Receive Date: 20040721
  Receipt Date: 20040707
  Transmission Date: 20050211
  Serious: Yes (Death)
  Sender: FDA-Public Use
  Company Number: JP_040703735

PATIENT
  Age: 73 Year
  Sex: Male
  Weight: 56 kg

DRUGS (5)
  1. GEMZAR [Suspect]
     Indication: PANCREATIC CARCINOMA
     Dosage: 1200 MG OTHER
     Route: 050
     Dates: start: 20030424, end: 20031211
  2. FAMOTIDINE [Concomitant]
  3. METHYCOBAL (MECOBALAMIN) [Concomitant]
  4. MAGNESIUM OXIDE [Concomitant]
  5. PENFILL R (INSULIN HUMAN) [Concomitant]

REACTIONS (1)
  - CEREBRAL INFARCTION [None]
